FAERS Safety Report 9263912 (Version 1)
Quarter: 2013Q1

REPORT INFORMATION
  Report Type: Spontaneous
  Country: US (occurrence: None)
  Receive Date: 20121212
  Receipt Date: 20121212
  Transmission Date: 20140127
  Serious: No
  Sender: FDA-Public Use
  Company Number: 1210USA008103

PATIENT
  Age: 53 Year
  Sex: Female
  Weight: 59 kg

DRUGS (4)
  1. VICTRELIS [Suspect]
     Dosage: TAKE 800MG (4 CAPSULES) BY MOUTH THREE A DAY EVERY 7-9 HOURS START ON WEEK 5, ORAL? ????????????????????????????????????
     Route: 048
  2. RIBAPAK [Suspect]
     Indication: HEPATITIS C
     Route: 048
     Dates: start: 20120613
  3. PEGASYS [Suspect]
     Dosage: UNK,  SUBCUTANEOUS
     Route: 058
     Dates: start: 20120613
  4. TYLENOL (ACETAMINOPHEN), 650 MG [Concomitant]

REACTIONS (3)
  - Migraine [None]
  - Insomnia [None]
  - Insomnia [None]
